FAERS Safety Report 4320961-9 (Version None)
Quarter: 2004Q1

REPORT INFORMATION
  Report Type: 
  Country: None (occurrence: None)
  Receive Date: 20040318
  Receipt Date: 20040303
  Transmission Date: 20041129
  Serious: Yes (Hospitalization)
  Sender: FDA-Public Use
  Company Number: MPS1-10180

PATIENT
  Age: 5 Year
  Sex: Female

DRUGS (1)
  1. ALDURAZYME [Suspect]
     Indication: MUCOPOLYSACCHARIDOSIS I
     Dosage: 0.58 MG/KG QWK IV
     Route: 042
     Dates: start: 20030601

REACTIONS (3)
  - ANOXIC ENCEPHALOPATHY [None]
  - DIARRHOEA [None]
  - RESPIRATORY ARREST [None]
